FAERS Safety Report 8334651-9 (Version None)
Quarter: 2012Q2

REPORT INFORMATION
  Report Type: 
  Country: None (occurrence: None)
  Receive Date: 20120503
  Receipt Date: 20110426
  Transmission Date: 20120825
  Serious: No
  Sender: FDA-Public Use
  Company Number: US-TEVA-2011002043

PATIENT
  Sex: Female
  Weight: 68.1 kg

DRUGS (3)
  1. NUVIGIL [Suspect]
     Indication: NARCOLEPSY
     Dosage: 250 MILLIGRAM;
     Route: 048
     Dates: start: 20101101
  2. YAZ [Concomitant]
  3. MULTI-VITAMIN [Concomitant]

REACTIONS (1)
  - POLYMENORRHOEA [None]
